FAERS Safety Report 8677555 (Version 3)
Quarter: 2013Q1

REPORT INFORMATION
  Report Type: Spontaneous
  Country: US (occurrence: US)
  Receive Date: 20120723
  Receipt Date: 20130118
  Transmission Date: 20140127
  Serious: Yes (Other)
  Sender: FDA-Public Use
  Company Number: US-PFIZER INC-2012173622

PATIENT
  Age: 57 Year
  Sex: Male
  Weight: 73.02 kg

DRUGS (25)
  1. ALDACTAZIDE [Suspect]
     Dosage: 1 DF, 2X/WEEK
  2. CALAN [Suspect]
     Dosage: UNK
  3. CALAN SR [Suspect]
     Dosage: 240 MG, (120 MG 2 TABS DAILY)
  4. CALAN SR [Suspect]
     Dosage: 180 MG, DAILY
  5. LOTENSIN [Concomitant]
     Dosage: 20 MG, 1X/DAY
  6. SPIRIVA [Concomitant]
     Dosage: 18 UG, 1X/DAY
  7. XOPENEX [Concomitant]
     Dosage: UNK, AS NEEDED (1.25 MG/3ML 1 TABLET)
  8. VENTOLIN HFA [Concomitant]
     Dosage: UNK, AS NEEDED (AEROSOL WITH ADAPTER CFC FREE 90 MCG/INH 2 PUFF(S) )
  9. TRILAFON [Concomitant]
     Dosage: 4 MG, 2X/DAY
  10. VERAPAMIL - SLOW RELEASE [Concomitant]
     Dosage: 180 MG, 1X/DAY
  11. MILK THISTLE [Concomitant]
     Dosage: UNK, 1X/DAY (1 CAP(S) Q DAY)
  12. VALIUM [Concomitant]
     Dosage: 10 MG, 1X/DAY
  13. RECLAST [Concomitant]
     Dosage: UNK, (5 MG/100 ML 5.0 MG ONCE YEARLY)
  14. NEXIUM [Concomitant]
     Dosage: 40 MG, 2X/DAY
  15. NITROSTAT [Concomitant]
     Dosage: 0.4 MG, AS NEEDED
  16. FLONASE [Concomitant]
     Dosage: 100 UG, AS NEEDED (50 MCG PER SPRAY 2 SPRAY EACH NOSTRIL)
     Route: 045
  17. SINGULAIR [Concomitant]
     Dosage: 10 MG, 1X/DAY
  18. METHOTREXATE [Concomitant]
     Dosage: 15 MG, WEEKLY (2.5 MG, 6 TABS)
  19. VITAMIN D [Concomitant]
     Dosage: 50000 IU, (1 CAP(S) 1 TIME A WEEK)
  20. FOLIC ACID [Concomitant]
     Dosage: 1 MG, 1X/DAY
  21. MONTELUKAST [Concomitant]
     Dosage: 10 MG, 1X/DAY (IN THE EVENING)
  22. AUGMENTIN [Concomitant]
     Dosage: UNK, (875 MG-125 MG 1 TAB(S) EVERY 12 HOURS WITH FOOD)
  23. ALBUTEROL [Concomitant]
     Dosage: UNK, 4X/DAY (AEROSOL CFC FREE 90 MCG/INH 2 PUFF (S)
     Route: 045
  24. HYDROMORPHONE [Concomitant]
     Dosage: 4 MG, 2 TABS 5 TIMES DAILY)
  25. OXYCODONE [Concomitant]
     Indication: PAIN
     Dosage: 4 TAB(S) UP TO 7 TIMES DAILY)

REACTIONS (1)
  - Bradycardia [Unknown]
